FAERS Safety Report 7604156-9 (Version None)
Quarter: 2011Q3

REPORT INFORMATION
  Report Type: 
  Country: None (occurrence: None)
  Receive Date: 20110712
  Receipt Date: 20110704
  Transmission Date: 20111222
  Serious: Yes (Hospitalization)
  Sender: FDA-Public Use
  Company Number: AU-JNJFOC-20110402199

PATIENT
  Sex: Male
  Weight: 73.8 kg

DRUGS (4)
  1. VALPROATE SODIUM [Concomitant]
     Indication: AFFECTIVE DISORDER
     Dates: start: 20110301
  2. INVEGA SUSTENNA [Suspect]
     Route: 030
     Dates: start: 20110303, end: 20110303
  3. INVEGA SUSTENNA [Suspect]
     Indication: SCHIZOPHRENIA
     Route: 030
     Dates: start: 20110310
  4. TEMAZEPAM [Concomitant]
     Indication: INSOMNIA
     Dates: start: 20110226

REACTIONS (1)
  - AGGRESSION [None]
